FAERS Safety Report 8587622-1 (Version None)
Quarter: 2012Q3

REPORT INFORMATION
  Report Type: 
  Country: None (occurrence: None)
  Receive Date: 20120811
  Receipt Date: 20120806
  Transmission Date: 20120928
  Serious: No
  Sender: FDA-Public Use
  Company Number: US-009507513-1208USA003184

PATIENT

DRUGS (2)
  1. DIGESTIVE ADVANTAGE CROHNS AND COLITIS THERAPY [Concomitant]
  2. NUVARING [Suspect]
     Indication: CONTRACEPTION
     Dosage: 3 WEEK IN, 1 WEEK OUT
     Route: 067
     Dates: start: 20090101

REACTIONS (2)
  - BURNING SENSATION [None]
  - DEVICE BREAKAGE [None]
